FAERS Safety Report 12977475 (Version 1)
Quarter: 2016Q4

REPORT INFORMATION
  Report Type: Report from Study
  Country: US (occurrence: US)
  Receive Date: 20161128
  Receipt Date: 20161128
  Transmission Date: 20170207
  Serious: No
  Sender: FDA-Public Use
  Company Number: US-AMGEN-USASL2016158644

PATIENT
  Age: 60 Year
  Sex: Female

DRUGS (1)
  1. ENBREL [Suspect]
     Active Substance: ETANERCEPT
     Indication: PSORIASIS
     Dosage: 50 MG, ONCE PER WEEK
     Route: 058
     Dates: start: 2013

REACTIONS (4)
  - Pain [Unknown]
  - Dizziness [Unknown]
  - Stomatitis [Unknown]
  - Insomnia [Unknown]

NARRATIVE: CASE EVENT DATE: 2016
